FAERS Safety Report 26057527 (Version 1)
Quarter: 2025Q4

REPORT INFORMATION
  Report Type: Spontaneous
  Country: US (occurrence: US)
  Receive Date: 20251118
  Receipt Date: 20251118
  Transmission Date: 20260117
  Serious: No
  Sender: UCB
  Company Number: US-UCBSA-2024065096

PATIENT
  Age: 68 Day

DRUGS (6)
  1. LEVETIRACETAM [Suspect]
     Active Substance: LEVETIRACETAM
     Indication: Seizure
     Dosage: 40 TO 60 MG/KG
  2. LEVETIRACETAM [Suspect]
     Active Substance: LEVETIRACETAM
     Dosage: 50 TO 100 MG/KG/DAY IN DIVIDED DOSES
  3. LACOSAMIDE [Suspect]
     Active Substance: LACOSAMIDE
     Indication: Seizure
     Dosage: 6 MILLIGRAM/KILOGRAM
  4. LACOSAMIDE [Suspect]
     Active Substance: LACOSAMIDE
     Dosage: 5 MILLIGRAM/KILOGRAM, ONCE DAILY (QD), 2 DIVIDED DOSES
  5. PHENOBARBITAL [Suspect]
     Active Substance: PHENOBARBITAL
     Indication: Seizure
     Dosage: 20 MILLIGRAM/KILOGRAM
  6. PHENOBARBITAL [Suspect]
     Active Substance: PHENOBARBITAL
     Dosage: 5 MILLIGRAM/KILOGRAM, ONCE DAILY (QD) IN IN 2 DIVIDED DOSES

REACTIONS (2)
  - Multiple-drug resistance [Unknown]
  - Off label use [Unknown]
